FAERS Safety Report 7864172-9 (Version None)
Quarter: 2011Q4

REPORT INFORMATION
  Report Type: 
  Country: None (occurrence: None)
  Receive Date: 20111028
  Receipt Date: 20111026
  Transmission Date: 20120403
  Serious: Yes (Other)
  Sender: FDA-Public Use
  Company Number: AU-PFIZER INC-2011203400

PATIENT
  Age: 39 Year
  Sex: Male
  Weight: 82 kg

DRUGS (3)
  1. NEXIUM [Concomitant]
     Indication: GASTROOESOPHAGEAL REFLUX DISEASE
     Dosage: 40 MG, 1X/DAY
     Route: 048
  2. VARENICLINE TARTRATE [Suspect]
     Indication: SMOKING CESSATION THERAPY
     Dosage: 0.5 MG, DAILY
     Route: 048
  3. VARENICLINE TARTRATE [Suspect]
     Dosage: 0.5 MG, 2X/DAY
     Dates: end: 20110831

REACTIONS (4)
  - FEAR [None]
  - FEELING ABNORMAL [None]
  - SUICIDAL IDEATION [None]
  - DEPRESSED MOOD [None]
